FAERS Safety Report 11567517 (Version 1)
Quarter: 2015Q3

REPORT INFORMATION
  Report Type: Report from Study
  Country: US (occurrence: US)
  Receive Date: 20150929
  Receipt Date: 20150929
  Transmission Date: 20151125
  Serious: No
  Sender: FDA-Public Use
  Company Number: US-AMGEN-USASP2015098547

PATIENT
  Age: 46 Year
  Sex: Male

DRUGS (5)
  1. FOLIC ACID. [Concomitant]
     Active Substance: FOLIC ACID
     Dosage: UNK
  2. VITAMIN D                          /00107901/ [Concomitant]
     Active Substance: ERGOCALCIFEROL
     Dosage: UNK
  3. METHOTREXATE [Concomitant]
     Active Substance: METHOTREXATE
     Dosage: 3 TABLETS PER WEEK ON WEDNESDAY
  4. ENBREL [Suspect]
     Active Substance: ETANERCEPT
     Indication: PSORIATIC ARTHROPATHY
     Dosage: 50 MG, UNK
     Route: 065
     Dates: start: 2010
  5. VITAMIN B12 [Concomitant]
     Active Substance: CYANOCOBALAMIN
     Dosage: UNK

REACTIONS (19)
  - Impaired healing [Unknown]
  - Fibromyalgia [Unknown]
  - Influenza [Unknown]
  - Nasopharyngitis [Unknown]
  - Visual impairment [Unknown]
  - Joint dislocation [Unknown]
  - Skin haemorrhage [Unknown]
  - Spinal disorder [Unknown]
  - Arthropathy [Unknown]
  - Hearing impaired [Unknown]
  - Arthritis [Unknown]
  - Exposure to communicable disease [Recovered/Resolved]
  - Therapeutic response decreased [Unknown]
  - Back pain [Unknown]
  - Ear infection [Recovered/Resolved]
  - Pain in extremity [Unknown]
  - Skin discolouration [Unknown]
  - Dry skin [Unknown]
  - Peripheral swelling [Unknown]

NARRATIVE: CASE EVENT DATE: 2012
